FAERS Safety Report 7971769-4 (Version None)
Quarter: 2011Q4

REPORT INFORMATION
  Report Type: 
  Country: None (occurrence: None)
  Receive Date: 20111212
  Receipt Date: 20111201
  Transmission Date: 20120403
  Serious: Yes (Hospitalization)
  Sender: FDA-Public Use
  Company Number: US-BAYER-2011-112103

PATIENT
  Age: 19 Year
  Sex: Female
  Weight: 54.422 kg

DRUGS (2)
  1. ZELNORM [Concomitant]
     Dosage: UNK UNK, PRN
  2. YASMIN [Suspect]
     Indication: CONTRACEPTION
     Dosage: UNK
     Dates: start: 20041222, end: 20060107

REACTIONS (3)
  - INJURY [None]
  - PANCREATITIS [None]
  - PAIN [None]
